FAERS Safety Report 21327442 (Version 1)
Quarter: 2022Q3

REPORT INFORMATION
  Report Type: Spontaneous
  Country: US (occurrence: None)
  Receive Date: 20220912
  Receipt Date: 20220912
  Transmission Date: 20221027
  Serious: Yes (Death)
  Sender: FDA-Public Use
  Company Number: None

PATIENT
  Age: 61 Year
  Sex: Female

DRUGS (1)
  1. CAPECITABINE [Suspect]
     Active Substance: CAPECITABINE
     Dosage: OTHER QUANTITY : 4500MG TOTAL DAILY;?FREQUENCY : TWICE A DAY;?
     Route: 048
     Dates: start: 202203, end: 202208

REACTIONS (3)
  - Pneumonia [None]
  - Dysphagia [None]
  - Pain [None]

NARRATIVE: CASE EVENT DATE: 20220825
